FAERS Safety Report 9201819 (Version 1)
Quarter: 2013Q1

REPORT INFORMATION
  Report Type: Spontaneous
  Country: FR (occurrence: None)
  Receive Date: 20130327
  Receipt Date: 20130327
  Transmission Date: 20140127
  Serious: Yes (Hospitalization, Other)
  Sender: FDA-Public Use
  Company Number: THQ2013A02143

PATIENT
  Age: 52 Year
  Sex: Male

DRUGS (8)
  1. OGAST [Suspect]
     Dosage: 1-2
     Route: 048
     Dates: start: 20121022
  2. LYRICA (PREGABALIN) [Suspect]
     Route: 048
     Dates: start: 20121117
  3. ATORVASTATIN CALCIUM [Suspect]
     Route: 048
     Dates: start: 20121022
  4. CLOPIDOGREL [Suspect]
     Route: 048
     Dates: start: 20121022
  5. DAFALGAN [Suspect]
     Route: 048
     Dates: start: 20121022
  6. LOVENOX [Suspect]
     Route: 058
     Dates: start: 20121022, end: 20121216
  7. NICOPATCH [Suspect]
     Route: 062
     Dates: start: 20121022
  8. MILNACIPRAN [Suspect]
     Route: 048
     Dates: start: 20121025, end: 20121125

REACTIONS (1)
  - Leukocytoclastic vasculitis [None]
